FAERS Safety Report 10178595 (Version 1)
Quarter: 2014Q2

REPORT INFORMATION
  Report Type: Spontaneous
  Country: US (occurrence: None)
  Receive Date: 20140516
  Receipt Date: 20140516
  Transmission Date: 20141212
  Serious: No
  Sender: FDA-Public Use
  Company Number: None

PATIENT
  Age: 56 Year
  Sex: Female
  Weight: 42.18 kg

DRUGS (1)
  1. MOVIPREP. POWDER PACKET 2 LITERS SALIX PHARMACEUTICALS [Suspect]
     Indication: COLONOSCOPY
     Dosage: TAKEN BY MOUTH
     Dates: start: 20140513, end: 20140514

REACTIONS (4)
  - Faecal incontinence [None]
  - Thirst [None]
  - Anuria [None]
  - Dehydration [None]
